FAERS Safety Report 17214747 (Version 1)
Quarter: 2020Q1

REPORT INFORMATION
  Report Type: Spontaneous
  Country: US (occurrence: US)
  Receive Date: 20191229
  Receipt Date: 20191229
  Transmission Date: 20200409
  Serious: Yes (Disabling)
  Sender: FDA-Public Use
  Company Number: None

PATIENT
  Age: 33 Year
  Sex: Female
  Weight: 63 kg

DRUGS (4)
  1. PROBIOTICS [Concomitant]
     Active Substance: PROBIOTICS NOS
  2. CIPRODEX [Suspect]
     Active Substance: CIPROFLOXACIN HYDROCHLORIDE\DEXAMETHASONE
     Indication: EAR INFECTION
     Route: 001
     Dates: start: 20191115, end: 20191220
  3. CLARITIN [Concomitant]
     Active Substance: LORATADINE
  4. ALIVE! WOMENS VITAMIN GUMMIES [Concomitant]

REACTIONS (5)
  - Drug ineffective [None]
  - Ear discomfort [None]
  - Pain in jaw [None]
  - Ear pain [None]
  - Dysphagia [None]

NARRATIVE: CASE EVENT DATE: 20191120
